FAERS Safety Report 4605061-2 (Version None)
Quarter: 2005Q1

REPORT INFORMATION
  Report Type: 
  Country: None (occurrence: None)
  Receive Date: 20050311
  Receipt Date: 20040326
  Transmission Date: 20050727
  Serious: Yes (Hospitalization)
  Sender: FDA-Public Use
  Company Number: DE-BRISTOL-MYERS SQUIBB COMPANY-12543450

PATIENT
  Age: 74 Year
  Sex: Male

DRUGS (4)
  1. CISPLATIN [Suspect]
     Indication: NON-SMALL CELL LUNG CANCER
     Dosage: INITIAL DOSE: 11-MAR-2003
     Route: 042
     Dates: start: 20030513, end: 20030513
  2. PACLITAXEL [Suspect]
     Indication: NON-SMALL CELL LUNG CANCER
     Dosage: INITIAL DOSE: 11-MAR-2003
     Route: 042
     Dates: start: 20030513, end: 20030513
  3. PROPRANOLOL HYDROCHLORIDE [Concomitant]
     Indication: VARICES OESOPHAGEAL
  4. ZYLORIC [Concomitant]
     Indication: HYPERURICAEMIA

REACTIONS (4)
  - ANOREXIA [None]
  - DIARRHOEA [None]
  - NAUSEA [None]
  - PANCYTOPENIA [None]
